FAERS Safety Report 20607423 (Version 5)
Quarter: 2025Q1

REPORT INFORMATION
  Report Type: Spontaneous
  Country: US (occurrence: US)
  Receive Date: 20220317
  Receipt Date: 20250107
  Transmission Date: 20250409
  Serious: Yes (Hospitalization, Other)
  Sender: PFIZER
  Company Number: US-PFIZER INC-202200419349

PATIENT
  Age: 76 Year
  Sex: Female

DRUGS (1)
  1. XELJANZ [Suspect]
     Active Substance: TOFACITINIB CITRATE

REACTIONS (10)
  - Atrial fibrillation [Unknown]
  - Craniofacial fracture [Unknown]
  - Fall [Unknown]
  - Shoulder fracture [Unknown]
  - Knee operation [Unknown]
  - Shoulder operation [Unknown]
  - Ankle operation [Unknown]
  - Heart rate increased [Not Recovered/Not Resolved]
  - Blood pressure abnormal [Unknown]
  - Pain [Unknown]

NARRATIVE: CASE EVENT DATE: 20220101
